FAERS Safety Report 6628330-3 (Version None)
Quarter: 2010Q1

REPORT INFORMATION
  Report Type: 
  Country: None (occurrence: None)
  Receive Date: 20100311
  Receipt Date: 20100302
  Transmission Date: 20100710
  Serious: Yes (Other)
  Sender: FDA-Public Use
  Company Number: JP-PFIZER INC-2010027984

PATIENT
  Sex: Female

DRUGS (1)
  1. XALATAN [Suspect]
     Dosage: FREQUENCY: ONCE, EVERY DAY;
     Route: 047

REACTIONS (7)
  - BLEPHARAL PIGMENTATION [None]
  - COUGH [None]
  - EYE IRRITATION [None]
  - EYE PAIN [None]
  - HEADACHE [None]
  - PALPITATIONS [None]
  - PRODUCTIVE COUGH [None]
